FAERS Safety Report 13102364 (Version 1)
Quarter: 2017Q1

REPORT INFORMATION
  Report Type: Spontaneous
  Country: US (occurrence: US)
  Receive Date: 20170110
  Receipt Date: 20170110
  Transmission Date: 20170428
  Serious: No
  Sender: FDA-Public Use
  Company Number: US-ALLERGAN-1602567US

PATIENT
  Sex: Female
  Weight: 158.73 kg

DRUGS (12)
  1. CALCIUM [Concomitant]
     Active Substance: CALCIUM
     Dosage: UNK, QD
     Route: 048
  2. SYNTHROID [Concomitant]
     Active Substance: LEVOTHYROXINE SODIUM
     Dosage: 0.2 MG, QD
  3. PRED FORTE [Suspect]
     Active Substance: PREDNISOLONE ACETATE
     Indication: POST PROCEDURAL INFLAMMATION
     Dosage: 1 GTT, QD
     Route: 047
     Dates: start: 20160122, end: 20160218
  4. COUMADIN [Concomitant]
     Active Substance: WARFARIN SODIUM
     Dosage: 2.5 MG, QOD
  5. COUMADIN [Concomitant]
     Active Substance: WARFARIN SODIUM
     Dosage: 5 MG 3 TIMES A WEEK
  6. POTASSIUM [Concomitant]
     Active Substance: POTASSIUM
     Indication: PRODUCT USED FOR UNKNOWN INDICATION
     Dosage: 20 MEQ, QD
  7. LASIX [Concomitant]
     Active Substance: FUROSEMIDE
     Dosage: 40 MG, BID
  8. CARDIZEM LA [Concomitant]
     Active Substance: DILTIAZEM HYDROCHLORIDE
     Dosage: 120 MG, QD
  9. LISINOPRIL. [Concomitant]
     Active Substance: LISINOPRIL
     Dosage: 5 MG, QD
  10. PAXIL [Concomitant]
     Active Substance: PAROXETINE HYDROCHLORIDE
     Dosage: 40 MG, QD
  11. CRESTOR [Concomitant]
     Active Substance: ROSUVASTATIN CALCIUM
     Dosage: 5 MG, QD
  12. VITAMIN D3 [Concomitant]
     Active Substance: CHOLECALCIFEROL
     Dosage: 5000 IU, QD

REACTIONS (1)
  - Cataract [Unknown]
